FAERS Safety Report 21957409 (Version 1)
Quarter: 2023Q1

REPORT INFORMATION
  Report Type: Spontaneous
  Country: US (occurrence: US)
  Receive Date: 20230206
  Receipt Date: 20230206
  Transmission Date: 20230417
  Serious: No
  Sender: FDA-Public Use
  Company Number: US-AMGEN-USASP2023018821

PATIENT
  Sex: Male

DRUGS (12)
  1. OTEZLA [Suspect]
     Active Substance: APREMILAST
     Indication: Psoriasis
     Dosage: 30 MILLIGRAM, BID
     Route: 048
  2. ASMANEX HFA [Concomitant]
     Active Substance: MOMETASONE FUROATE
  3. BACLOFEN [Concomitant]
     Active Substance: BACLOFEN
  4. EMGALITY [Concomitant]
     Active Substance: GALCANEZUMAB-GNLM
  5. HYDROCHLOROTHIAZIDE [Concomitant]
     Active Substance: HYDROCHLOROTHIAZIDE
  6. ATENOLOL [Concomitant]
     Active Substance: ATENOLOL
  7. VITAMIN D3 [Concomitant]
     Active Substance: CHOLECALCIFEROL
  8. VITAMINS [Concomitant]
     Active Substance: VITAMINS
  9. TESTOSTERONE CYPIONATE [Concomitant]
     Active Substance: TESTOSTERONE CYPIONATE
  10. CYCLOBENZAPRINE HYDROCHLORIDE [Concomitant]
     Active Substance: CYCLOBENZAPRINE HYDROCHLORIDE
  11. FAMOTIDINE [Concomitant]
     Active Substance: FAMOTIDINE
  12. PAROXETINE [Concomitant]
     Active Substance: PAROXETINE

REACTIONS (4)
  - Psoriasis [Unknown]
  - Therapeutic product effect incomplete [Unknown]
  - Skin disorder [Unknown]
  - Skin graft [Unknown]
